FAERS Safety Report 23919813 (Version 1)
Quarter: 2024Q2

REPORT INFORMATION
  Report Type: Spontaneous
  Country: BR (occurrence: BR)
  Receive Date: 20240530
  Receipt Date: 20240530
  Transmission Date: 20240716
  Serious: Yes (Other)
  Sender: FDA-Public Use
  Company Number: BR-TAKEDA-2024TUS052582

PATIENT
  Age: 61 Year
  Sex: Male
  Weight: 85.5 kg

DRUGS (3)
  1. PANTOZOL [Suspect]
     Active Substance: PANTOPRAZOLE SODIUM
     Indication: Oesophagitis
     Dosage: UNK
     Route: 065
  2. PANTOZOL [Suspect]
     Active Substance: PANTOPRAZOLE SODIUM
     Indication: Hiatus hernia
  3. DIVENA [Concomitant]
     Dosage: UNK

REACTIONS (7)
  - Hypertrophic cardiomyopathy [Unknown]
  - Retinal detachment [Unknown]
  - Platelet count decreased [Unknown]
  - Illness [Unknown]
  - Dengue fever [Recovering/Resolving]
  - Weight decreased [Recovering/Resolving]
  - Off label use [Unknown]

NARRATIVE: CASE EVENT DATE: 20180101
